FAERS Safety Report 7584937-0 (Version None)
Quarter: 2011Q2

REPORT INFORMATION
  Report Type: 
  Country: None (occurrence: None)
  Receive Date: 20110630
  Receipt Date: 20110627
  Transmission Date: 20111010
  Serious: Yes (Disabling)
  Sender: FDA-Public Use
  Company Number: US-ABBOTT-11P-163-0834867-00

PATIENT
  Sex: Female
  Weight: 52.21 kg

DRUGS (2)
  1. HUMIRA [Suspect]
     Indication: CROHN'S DISEASE
     Route: 058
     Dates: start: 20090901
  2. CELEXA [Concomitant]
     Indication: ANXIETY
     Route: 048
     Dates: start: 20090101

REACTIONS (3)
  - DEAFNESS [None]
  - TINNITUS [None]
  - EAR DISCOMFORT [None]
